FAERS Safety Report 24197896 (Version 3)
Quarter: 2025Q1

REPORT INFORMATION
  Report Type: Spontaneous
  Country: FR (occurrence: FR)
  Receive Date: 20240811
  Receipt Date: 20250214
  Transmission Date: 20250409
  Serious: Yes (Hospitalization, Other)
  Sender: AUROBINDO
  Company Number: FR-JNJFOC-20240731538

PATIENT
  Age: 67 Year
  Sex: Male
  Weight: 83 kg

DRUGS (5)
  1. LENALIDOMIDE [Suspect]
     Active Substance: LENALIDOMIDE
     Indication: Plasma cell myeloma
     Route: 048
     Dates: start: 20191011, end: 20200623
  2. LENALIDOMIDE [Suspect]
     Active Substance: LENALIDOMIDE
     Route: 048
     Dates: start: 20200706
  3. DARATUMUMAB [Suspect]
     Active Substance: DARATUMUMAB
     Indication: Plasma cell myeloma
     Route: 058
  4. DEXAMETHASONE [Concomitant]
     Active Substance: DEXAMETHASONE
     Indication: Plasma cell myeloma
     Route: 065
  5. BORTEZOMIB [Concomitant]
     Active Substance: BORTEZOMIB
     Indication: Plasma cell myeloma
     Route: 058

REACTIONS (2)
  - Pneumonia [Recovered/Resolved]
  - Lung disorder [Recovered/Resolved]

NARRATIVE: CASE EVENT DATE: 20240525
